FAERS Safety Report 8510071-9 (Version None)
Quarter: 2012Q3

REPORT INFORMATION
  Report Type: 
  Country: None (occurrence: None)
  Receive Date: 20120713
  Receipt Date: 20120710
  Transmission Date: 20120928
  Serious: Yes (Hospitalization)
  Sender: FDA-Public Use
  Company Number: US-PFIZER INC-2012166278

PATIENT
  Sex: Male
  Weight: 72.562 kg

DRUGS (3)
  1. CADUET [Suspect]
     Indication: HYPERTENSION
     Dosage: [AMLODIPINE BESYLATE 10 MG/ ATORVASTATIN CALCIUM 40MG], DAILY
     Dates: start: 20050101, end: 20120615
  2. CADUET [Suspect]
     Indication: BLOOD CHOLESTEROL ABNORMAL
  3. PLAVIX [Concomitant]
     Dosage: UNK
     Dates: end: 20120101

REACTIONS (1)
  - MYOCARDIAL INFARCTION [None]
